FAERS Safety Report 5648316-5 (Version None)
Quarter: 2008Q1

REPORT INFORMATION
  Report Type: 
  Country: None (occurrence: None)
  Receive Date: 20080229
  Receipt Date: 20080215
  Transmission Date: 20080703
  Serious: Yes (Hospitalization)
  Sender: FDA-Public Use
  Company Number: 20073629

PATIENT
  Age: 33 Year
  Sex: Female

DRUGS (1)
  1. GABALON INTRATHECAL (BACLOFEN INJECTION) 0.05% [Suspect]
     Indication: MUSCLE SPASTICITY
     Dosage: 90 MCG DAILY INTRATHECAL
     Route: 037
     Dates: start: 20020401

REACTIONS (8)
  - BRONCHITIS [None]
  - CYANOSIS [None]
  - HYPERVENTILATION [None]
  - INCREASED BRONCHIAL SECRETION [None]
  - NASOPHARYNGITIS [None]
  - OXYGEN SATURATION DECREASED [None]
  - PANIC ATTACK [None]
  - RESPIRATORY DISORDER [None]
